FAERS Safety Report 5190399-3 (Version None)
Quarter: 2006Q4

REPORT INFORMATION
  Report Type: 
  Country: None (occurrence: None)
  Receive Date: 20061222
  Receipt Date: 20061120
  Transmission Date: 20070319
  Serious: Yes (Hospitalization)
  Sender: FDA-Public Use
  Company Number: FR-ROCHE-472117

PATIENT
  Age: 60 Year
  Sex: Female
  Weight: 55 kg

DRUGS (8)
  1. XELODA [Suspect]
     Dosage: FIRST CYCLE OF 1600 MG FOR TWO WEEKS WAS AT REDUCED DOSAGE. THE SECOND CYCLE WAS STARTED ON 19 OCTO+
     Route: 048
     Dates: start: 20060720
  2. XELODA [Suspect]
     Route: 048
     Dates: start: 20050515, end: 20060515
  3. NAVELBINE [Suspect]
     Dosage: ROUTE REPORTED AS ORAL. FIRST CYCLE AT REDUCED DOSAGE AT DAY ONE AND AT DAY EIGHT OF XELODA THERAPY+
     Route: 050
     Dates: start: 20060720
  4. NOVONORM [Concomitant]
     Dosage: THREE DOSES PER DAY.
     Route: 048
     Dates: start: 19960615
  5. ZOFRAN [Concomitant]
  6. COUMADIN [Concomitant]
     Dates: start: 20060715
  7. METHOTREXATE [Concomitant]
     Dosage: NO RESPONSE.
     Dates: start: 20060615, end: 20060715
  8. ENDOXAN [Concomitant]
     Dosage: NO RESPONSE.
     Dates: start: 20060615, end: 20060715

REACTIONS (6)
  - HAEMATOTOXICITY [None]
  - HAEMOLYTIC ANAEMIA [None]
  - PALMAR-PLANTAR ERYTHRODYSAESTHESIA SYNDROME [None]
  - RENAL FAILURE ACUTE [None]
  - THERAPY NON-RESPONDER [None]
  - THROMBOCYTOPENIA [None]
